FAERS Safety Report 7971373-8 (Version None)
Quarter: 2011Q4

REPORT INFORMATION
  Report Type: 
  Country: None (occurrence: None)
  Receive Date: 20111212
  Receipt Date: 20111130
  Transmission Date: 20120403
  Serious: Yes (Hospitalization)
  Sender: FDA-Public Use
  Company Number: US-MERCK-1112USA00255

PATIENT
  Age: 69 Year
  Sex: Male

DRUGS (3)
  1. LEVOFLOXACIN [Concomitant]
     Indication: SKIN REACTION
     Route: 048
  2. ZOCOR [Suspect]
     Route: 048
  3. DAPTOMYCIN [Suspect]
     Indication: SKIN REACTION
     Dosage: 8 MG/KG WITH WEIGHT OF 133 KG
     Route: 042

REACTIONS (2)
  - DRUG INTERACTION [None]
  - RHABDOMYOLYSIS [None]
